FAERS Safety Report 4603857-4 (Version None)
Quarter: 2005Q1

REPORT INFORMATION
  Report Type: 
  Country: None (occurrence: None)
  Receive Date: 20050308
  Receipt Date: 20050224
  Transmission Date: 20050727
  Serious: Yes (Other)
  Sender: FDA-Public Use
  Company Number: 2005039383

PATIENT
  Age: 78 Year
  Sex: Female

DRUGS (3)
  1. CELEBREX [Suspect]
     Indication: ILL-DEFINED DISORDER
     Dosage: 400 MG (200 MG, 2 IN 1 D)
  2. WARFARIN SODIUM [Concomitant]
  3. ANTIHYPERTENSIVES (ANTIHYPERTENSIVES) [Concomitant]

REACTIONS (5)
  - CARTILAGE INJURY [None]
  - HYPERTENSION [None]
  - ILL-DEFINED DISORDER [None]
  - OSTEOARTHRITIS [None]
  - SURGERY [None]
